FAERS Safety Report 19663420 (Version 1)
Quarter: 2021Q3

REPORT INFORMATION
  Report Type: Spontaneous
  Country: JP (occurrence: JP)
  Receive Date: 20210806
  Receipt Date: 20210806
  Transmission Date: 20211014
  Serious: Yes (Other)
  Sender: FDA-Public Use
  Company Number: JP-BEH-2021133997

PATIENT
  Age: 13 Year
  Sex: Male

DRUGS (2)
  1. HIZENTRA [Suspect]
     Active Substance: HUMAN IMMUNOGLOBULIN G
     Dosage: 6 GRAM/30 ML, QW
     Route: 058
     Dates: start: 20210709
  2. HIZENTRA [Suspect]
     Active Substance: HUMAN IMMUNOGLOBULIN G
     Indication: HYPOGAMMAGLOBULINAEMIA
     Dosage: 4 GRAM/20 ML, QW
     Route: 058
     Dates: end: 20210702

REACTIONS (2)
  - Weight increased [Unknown]
  - Encephalopathy [Recovered/Resolved]
